FAERS Safety Report 4506924-9 (Version None)
Quarter: 2004Q4

REPORT INFORMATION
  Report Type: 
  Country: None (occurrence: None)
  Receive Date: 20041117
  Receipt Date: 20041108
  Transmission Date: 20050328
  Serious: Yes (Death)
  Sender: FDA-Public Use
  Company Number: CERZ-10700

PATIENT
  Age: 4 Year
  Sex: Male
  Weight: 9.25 kg

DRUGS (2)
  1. CEREZYME [Suspect]
     Indication: GAUCHER'S DISEASE
     Dosage: 60 UG/KG Q2WK IV
     Route: 042
     Dates: start: 20010213, end: 20040101
  2. ARTANE [Concomitant]

REACTIONS (3)
  - CARDIOPULMONARY FAILURE [None]
  - PNEUMONIA ASPIRATION [None]
  - STATUS EPILEPTICUS [None]
